FAERS Safety Report 8302171-3 (Version None)
Quarter: 2012Q2

REPORT INFORMATION
  Report Type: 
  Country: None (occurrence: None)
  Receive Date: 20120418
  Receipt Date: 20120411
  Transmission Date: 20120825
  Serious: Yes (Life-Threatening, Hospitalization, Disabling)
  Sender: FDA-Public Use
  Company Number: 2012SP019321

PATIENT
  Age: 18 Year
  Sex: Female
  Weight: 49.8957 kg

DRUGS (1)
  1. IMPLANON [Suspect]
     Indication: CONTRACEPTION
     Dosage: 1 DF
     Dates: start: 20090301

REACTIONS (12)
  - WEIGHT INCREASED [None]
  - APPARENT LIFE THREATENING EVENT [None]
  - ANXIETY [None]
  - NAUSEA [None]
  - MOVEMENT DISORDER [None]
  - MOOD SWINGS [None]
  - MUSCLE SPASMS [None]
  - HEADACHE [None]
  - VISUAL IMPAIRMENT [None]
  - SUICIDE ATTEMPT [None]
  - AMENORRHOEA [None]
  - DEVICE DISLOCATION [None]
